FAERS Safety Report 20882118 (Version 1)
Quarter: 2022Q2

REPORT INFORMATION
  Report Type: Spontaneous
  Country: JP (occurrence: JP)
  Receive Date: 20220527
  Receipt Date: 20220527
  Transmission Date: 20220721
  Serious: Yes (Other)
  Sender: FDA-Public Use
  Company Number: JP-CELGENE-JPN-20211102146

PATIENT
  Age: 2 Year
  Sex: Male

DRUGS (2)
  1. AZACITIDINE [Suspect]
     Active Substance: AZACITIDINE
     Indication: Juvenile chronic myelomonocytic leukaemia
     Dosage: 100 MILLIGRAM/SQ. METER/24 HOURS
     Route: 042
  2. AZACITIDINE [Suspect]
     Active Substance: AZACITIDINE
     Dosage: 100 MILLIGRAM/SQ. METER/24 HOURS
     Route: 042
     Dates: start: 201101, end: 201609

REACTIONS (1)
  - Hyperbilirubinaemia [Unknown]
